FAERS Safety Report 24254889 (Version 1)
Quarter: 2024Q3

REPORT INFORMATION
  Report Type: Spontaneous
  Country: US (occurrence: US)
  Receive Date: 20240827
  Receipt Date: 20240827
  Transmission Date: 20241016
  Serious: Yes (Death)
  Sender: PFIZER
  Company Number: US-PFIZER INC-PV202300107977

PATIENT
  Age: 71 Year
  Sex: Male

DRUGS (2)
  1. BRAFTOVI [Suspect]
     Active Substance: ENCORAFENIB
     Dosage: 300 MG, DAILY [TAKE 4 CAPSULES (300 MG TOTAL) BY MOUTH DAILY]/300MG ORALLY DAILY
     Route: 048
  2. BINIMETINIB [Concomitant]
     Active Substance: BINIMETINIB
     Dosage: UNK

REACTIONS (1)
  - Death [Fatal]

NARRATIVE: CASE EVENT DATE: 20240817
